FAERS Safety Report 5041725-7 (Version None)
Quarter: 2006Q2

REPORT INFORMATION
  Report Type: 
  Country: None (occurrence: None)
  Receive Date: 20060630
  Receipt Date: 20060608
  Transmission Date: 20061013
  Serious: Yes (Other)
  Sender: FDA-Public Use
  Company Number: 430072K06USA

PATIENT
  Age: 51 Year
  Sex: Female

DRUGS (1)
  1. NOVANTRONE [Suspect]
     Indication: MULTIPLE SCLEROSIS
     Dosage: 1 IN 3 MOTNHS
     Dates: start: 20011101

REACTIONS (2)
  - DRUG TOXICITY [None]
  - MYELODYSPLASTIC SYNDROME [None]
